FAERS Safety Report 18386835 (Version 1)
Quarter: 2020Q4

REPORT INFORMATION
  Report Type: Spontaneous
  Country: US (occurrence: US)
  Receive Date: 20201015
  Receipt Date: 20201015
  Transmission Date: 20210114
  Serious: No
  Sender: FDA-Public Use
  Company Number: None

PATIENT
  Age: 39 Year
  Sex: Male
  Weight: 58.6 kg

DRUGS (1)
  1. REMDESIVIR. [Suspect]
     Active Substance: REMDESIVIR
     Indication: COVID-19
     Route: 040
     Dates: start: 20200911, end: 20200912

REACTIONS (3)
  - Aspartate aminotransferase increased [None]
  - Acute kidney injury [None]
  - Contraindicated product administered [None]

NARRATIVE: CASE EVENT DATE: 20200912
